FAERS Safety Report 8112598-0 (Version None)
Quarter: 2012Q1

REPORT INFORMATION
  Report Type: 
  Country: None (occurrence: None)
  Receive Date: 20120203
  Receipt Date: 20120120
  Transmission Date: 20120608
  Serious: Yes (Other)
  Sender: FDA-Public Use
  Company Number: GB-AMGEN-GBRSP2012005968

PATIENT
  Age: 68 Year
  Sex: Female
  Weight: 57 kg

DRUGS (5)
  1. ENBREL [Suspect]
     Indication: RHEUMATOID ARTHRITIS
     Dosage: 50 MG, MONTHLY
     Route: 058
     Dates: start: 20090428, end: 20110705
  2. CALCIUM CARBONATE [Concomitant]
     Dosage: UNK
  3. INSULIN [Concomitant]
     Dosage: UNK
  4. ALENDRONIC ACID [Concomitant]
     Dosage: UNK
  5. ETORICOXIB [Concomitant]
     Dosage: UNK

REACTIONS (6)
  - NEUTROPENIA [None]
  - THROMBOCYTOPENIA [None]
  - MYELODYSPLASTIC SYNDROME [None]
  - FIBROSIS [None]
  - HAEMOGLOBIN DECREASED [None]
  - ASPIRATION BONE MARROW ABNORMAL [None]
